FAERS Safety Report 11201592 (Version 2)
Quarter: 2015Q3

REPORT INFORMATION
  Report Type: Spontaneous
  Country: US (occurrence: None)
  Receive Date: 20150617
  Receipt Date: 20150717
  Transmission Date: 20151125
  Serious: Yes (Hospitalization, Other)
  Sender: FDA-Public Use
  Company Number: US-H14001-15-00844

PATIENT
  Age: 70 Year
  Sex: Male
  Weight: 54.43 kg

DRUGS (11)
  1. LISINOPRIL. [Concomitant]
     Active Substance: LISINOPRIL
  2. FUROSEMIDE. [Concomitant]
     Active Substance: FUROSEMIDE
  3. PREDNISONE TABLETS USP [Suspect]
     Active Substance: PREDNISONE
     Indication: DIARRHOEA
     Dosage: 6 PILLS FOR 3 DAYS, 5 PILLS FOR 3 DAYS, 4 PILLS FOR 3 DAYS, 3 PILLS FOR 3 DAYS, 1/2 PILL FOR THE LAST 3 DAYS
     Route: 048
     Dates: start: 20150424, end: 20150513
  4. PREDNISONE TABLETS USP [Suspect]
     Active Substance: PREDNISONE
     Indication: WEIGHT DECREASED
     Dosage: 6 PILLS FOR 3 DAYS, 5 PILLS FOR 3 DAYS, 4 PILLS FOR 3 DAYS, 3 PILLS FOR 3 DAYS, 1/2 PILL FOR THE LAST 3 DAYS
     Route: 048
     Dates: start: 20150424, end: 20150513
  5. HYDROCODONE [Concomitant]
     Active Substance: HYDROCODONE
  6. HYDROXYZINE PAMOATE(HYDROXYZINE EMBONATE) [Concomitant]
  7. VITAMIN C [Concomitant]
     Active Substance: ASCORBIC ACID
  8. POMEGRANATE (ALL OTHER NON-THERAPEUTIC PRODUCTS) [Concomitant]
  9. VITAMIN B-12 (CYANOCOBALAMIN) [Concomitant]
  10. CARVEDILOL. [Concomitant]
     Active Substance: CARVEDILOL
  11. ROPINIROLE HCL (ROPINIROLE HYDROCHLORIDE) (UNKNOWN) (ROPINIROLE HYDROCHLORIDE) [Concomitant]

REACTIONS (12)
  - Peripheral swelling [None]
  - Blood pressure increased [None]
  - Dysphagia [None]
  - Visual acuity reduced [None]
  - Spinal fracture [None]
  - Weight decreased [None]
  - Back pain [None]
  - Pneumonia [None]
  - Poor quality sleep [None]
  - Skin ulcer [None]
  - Dry mouth [None]
  - Stress [None]

NARRATIVE: CASE EVENT DATE: 2015
